FAERS Safety Report 4640007-2 (Version None)
Quarter: 2005Q2

REPORT INFORMATION
  Report Type: 
  Country: None (occurrence: None)
  Receive Date: 20050420
  Receipt Date: 20050408
  Transmission Date: 20051028
  Serious: Yes (Hospitalization)
  Sender: FDA-Public Use
  Company Number: US-BRISTOL-MYERS SQUIBB COMPANY-12926713

PATIENT
  Age: 20 Year
  Sex: Male

DRUGS (3)
  1. ABILIFY [Suspect]
     Indication: BIPOLAR DISORDER
  2. ABILIFY [Suspect]
     Indication: PARANOIA
  3. ABILIFY [Suspect]
     Indication: MOOD ALTERED

REACTIONS (3)
  - BLOOD POTASSIUM DECREASED [None]
  - HYPERTENSION [None]
  - PARALYSIS [None]
